FAERS Safety Report 10063228 (Version 5)
Quarter: 2015Q2

REPORT INFORMATION
  Report Type: Spontaneous
  Country: US (occurrence: US)
  Receive Date: 20140407
  Receipt Date: 20150522
  Transmission Date: 20150821
  Serious: Yes (Death, Life-Threatening, Hospitalization, Disabling, Other)
  Sender: FDA-Public Use
  Company Number: US-MERCK-1404USA003936

PATIENT
  Sex: Female
  Weight: 99.77 kg

DRUGS (2)
  1. JANUVIA [Suspect]
     Active Substance: SITAGLIPTIN PHOSPHATE
     Indication: TYPE 2 DIABETES MELLITUS
     Dosage: 100 MG, QD
     Route: 048
     Dates: start: 20081217, end: 20090525
  2. JANUMET [Suspect]
     Active Substance: METFORMIN HYDROCHLORIDE\SITAGLIPTIN PHOSPHATE
     Indication: TYPE 2 DIABETES MELLITUS
     Dosage: 50/1000 MG, BID
     Route: 048
     Dates: start: 20101004, end: 20120903

REACTIONS (57)
  - Haematoma [Unknown]
  - Hypoxia [Unknown]
  - Upper-airway cough syndrome [Unknown]
  - Toothache [Unknown]
  - Sinus operation [Unknown]
  - Adenocarcinoma pancreas [Fatal]
  - Pleural effusion [Unknown]
  - Hypotension [Unknown]
  - Barrett^s oesophagus [Unknown]
  - Seasonal allergy [Unknown]
  - Insomnia [Unknown]
  - Drug ineffective [Unknown]
  - Papilloma [Unknown]
  - Depression [Unknown]
  - Dry mouth [Unknown]
  - Uterine dilation and curettage [Unknown]
  - Diarrhoea [Unknown]
  - Headache [Unknown]
  - Metastases to liver [Unknown]
  - Metastases to soft tissue [Unknown]
  - Presyncope [Unknown]
  - Axillary vein thrombosis [Unknown]
  - Muscle tightness [Unknown]
  - Heart valve calcification [Unknown]
  - Neuropathy peripheral [Unknown]
  - Musculoskeletal chest pain [Unknown]
  - Metastasis [Unknown]
  - Somnolence [Recovering/Resolving]
  - Cardiac failure congestive [Unknown]
  - Polydipsia [Unknown]
  - Abdominal lymphadenopathy [Unknown]
  - Cough [Unknown]
  - Emotional distress [Unknown]
  - Carotid artery disease [Unknown]
  - Pyrexia [Unknown]
  - Culture urine positive [Unknown]
  - Pulmonary oedema [Unknown]
  - Dysphagia [Unknown]
  - Atelectasis [Unknown]
  - Stress [Unknown]
  - Left ventricular hypertrophy [Unknown]
  - Obstructive airways disorder [Unknown]
  - Rash [Unknown]
  - Failure to thrive [Unknown]
  - Fall [Unknown]
  - Fluid overload [Unknown]
  - Soft tissue mass [Unknown]
  - Performance status decreased [Unknown]
  - Osteoarthritis [Unknown]
  - Contusion [Unknown]
  - Productive cough [Unknown]
  - Metastases to lung [Unknown]
  - Gait disturbance [Recovering/Resolving]
  - Mental status changes [Unknown]
  - Anxiety [Unknown]
  - Haematoma [Unknown]
  - Fatigue [Unknown]

NARRATIVE: CASE EVENT DATE: 2008
